FAERS Safety Report 5754654-8 (Version None)
Quarter: 2008Q2

REPORT INFORMATION
  Report Type: 
  Country: None (occurrence: None)
  Receive Date: 20080530
  Receipt Date: 20080520
  Transmission Date: 20081010
  Serious: Yes (Other)
  Sender: FDA-Public Use
  Company Number: US-PFIZER INC-2008043575

PATIENT
  Sex: Female
  Weight: 72.727 kg

DRUGS (5)
  1. LYRICA [Suspect]
     Indication: FIBROMYALGIA
     Route: 048
     Dates: start: 20080516, end: 20080517
  2. ASPIRIN [Concomitant]
  3. VYTORIN [Concomitant]
  4. LOTREL [Concomitant]
  5. ALPRAZOLAM [Concomitant]

REACTIONS (22)
  - AMNESIA [None]
  - ANGER [None]
  - ASTHENIA [None]
  - CONVULSION [None]
  - CRYING [None]
  - DEPERSONALISATION [None]
  - DIPLOPIA [None]
  - DIZZINESS [None]
  - DRY MOUTH [None]
  - DYSKINESIA [None]
  - EUPHORIC MOOD [None]
  - EYE DISORDER [None]
  - EYE SWELLING [None]
  - FEELING ABNORMAL [None]
  - FEELING DRUNK [None]
  - HUNGER [None]
  - MUSCLE TWITCHING [None]
  - SOMNOLENCE [None]
  - SWELLING FACE [None]
  - THINKING ABNORMAL [None]
  - VERTIGO [None]
  - VISION BLURRED [None]
